FAERS Safety Report 15259197 (Version 1)
Quarter: 2018Q3

REPORT INFORMATION
  Report Type: Report from Study
  Country: CA (occurrence: CA)
  Receive Date: 20180809
  Receipt Date: 20180809
  Transmission Date: 20181010
  Serious: Yes (Hospitalization)
  Sender: FDA-Public Use
  Company Number: CA-TOLMAR, INC.-2018CA007965

PATIENT

DRUGS (1)
  1. ELIGARD [Suspect]
     Active Substance: LEUPROLIDE ACETATE
     Indication: PROSTATE CANCER
     Dosage: 22.5 MG, EVERY 12 WEEKS
     Route: 058
     Dates: start: 20140520

REACTIONS (2)
  - Fall [Recovered/Resolved with Sequelae]
  - Mobility decreased [Recovered/Resolved with Sequelae]

NARRATIVE: CASE EVENT DATE: 20180614
